FAERS Safety Report 16235388 (Version 1)
Quarter: 2019Q2

REPORT INFORMATION
  Report Type: Spontaneous
  Country: DE (occurrence: DE)
  Receive Date: 20190424
  Receipt Date: 20190424
  Transmission Date: 20190711
  Serious: Yes (Congenital Anomaly)
  Sender: FDA-Public Use
  Company Number: DE-ANIPHARMA-2019-DE-000051

PATIENT
  Age: 1 Day
  Sex: Female
  Weight: 1.99 kg

DRUGS (7)
  1. PRESINOL [Concomitant]
     Active Substance: METHYLDOPA
     Dosage: 375 MG DAILY
     Route: 050
     Dates: start: 20180508, end: 20180624
  2. VAGI-HEX [Concomitant]
     Dosage: UNK
     Route: 050
     Dates: start: 20180501, end: 20180505
  3. PARTUSISTEN [Concomitant]
     Active Substance: FENOTEROL
     Dosage: UNK
     Route: 050
     Dates: start: 20180505, end: 20180507
  4. CELESTAN [Concomitant]
     Active Substance: BETAMETHASONE
     Dosage: UNK
     Route: 050
     Dates: start: 20180427, end: 20180428
  5. FOLSAEURE ^HEVERT^ [Concomitant]
     Dosage: UNK
     Route: 050
  6. CANDESARTAN CILEXETIL. [Suspect]
     Active Substance: CANDESARTAN CILEXETIL
     Indication: HYPERTENSION
     Dosage: 8 MG DAILY
     Route: 050
     Dates: start: 20171025, end: 20180504
  7. VAGIFLOR [Concomitant]
     Dosage: UNK
     Route: 050
     Dates: start: 20180505, end: 20180510

REACTIONS (10)
  - Selective eating disorder [Recovered/Resolved]
  - Patent ductus arteriosus [Recovered/Resolved]
  - Facial asymmetry [Not Recovered/Not Resolved]
  - Respiratory disorder neonatal [Recovered/Resolved]
  - Ventricular septal defect [Not Recovered/Not Resolved]
  - Premature baby [Recovered/Resolved]
  - Renal cyst [Not Recovered/Not Resolved]
  - Nephrocalcinosis [Not Recovered/Not Resolved]
  - Temperature regulation disorder [Recovered/Resolved]
  - Retrognathia [Not Recovered/Not Resolved]
